FAERS Safety Report 6223639-X (Version None)
Quarter: 2009Q2

REPORT INFORMATION
  Report Type: 
  Country: None (occurrence: None)
  Receive Date: 20090611
  Receipt Date: 20090518
  Transmission Date: 20091009
  Serious: No
  Sender: FDA-Public Use
  Company Number: US-ABBOTT-07P-163-0415013-00

PATIENT
  Sex: Female
  Weight: 90.7 kg

DRUGS (6)
  1. HUMIRA [Suspect]
     Indication: RHEUMATOID ARTHRITIS
     Dates: start: 20061204, end: 20070801
  2. HUMIRA [Suspect]
     Route: 058
     Dates: start: 20070101
  3. AMITRIPTYLINE HYDROCHLORIDE [Suspect]
     Indication: VASODILATION PROCEDURE
  4. AMITRIPTYLINE HYDROCHLORIDE [Suspect]
     Indication: NEUROPATHY PERIPHERAL
  5. UNKNOWN MEDICATION [Concomitant]
     Indication: DIABETES MELLITUS
  6. DARVOCET [Concomitant]
     Indication: DRUG USE FOR UNKNOWN INDICATION

REACTIONS (8)
  - DYSKINESIA [None]
  - LIMB DISCOMFORT [None]
  - LOCALISED INFECTION [None]
  - MUSCLE SPASMS [None]
  - MUSCLE TWITCHING [None]
  - OEDEMA PERIPHERAL [None]
  - SECRETION DISCHARGE [None]
  - SOMNOLENCE [None]
